FAERS Safety Report 24821892 (Version 7)
Quarter: 2025Q2

REPORT INFORMATION
  Report Type: Spontaneous
  Country: US (occurrence: US)
  Receive Date: 20250108
  Receipt Date: 20250516
  Transmission Date: 20250717
  Serious: Yes (Hospitalization, Other)
  Sender: SANOFI AVENTIS
  Company Number: US-SA-2025SA006138

PATIENT
  Age: 73 Year
  Sex: Female

DRUGS (2)
  1. DUPIXENT [Suspect]
     Active Substance: DUPILUMAB
     Indication: Asthma
     Route: 058
     Dates: start: 202305, end: 202305
  2. DUPIXENT [Suspect]
     Active Substance: DUPILUMAB
     Indication: Dermatitis atopic
     Dosage: 300 MG, QOW
     Route: 058
     Dates: start: 2023

REACTIONS (14)
  - Pneumonia [Recovered/Resolved]
  - Respiratory syncytial virus infection [Recovered/Resolved]
  - Nausea [Recovered/Resolved]
  - Vomiting [Recovered/Resolved]
  - Weight decreased [Unknown]
  - Epistaxis [Recovered/Resolved]
  - Aphonia [Recovered/Resolved]
  - Decreased appetite [Not Recovered/Not Resolved]
  - Injection site pain [Recovered/Resolved]
  - Injection site swelling [Recovered/Resolved]
  - Upper respiratory tract infection [Recovered/Resolved]
  - Sinusitis [Recovered/Resolved]
  - Accidental exposure to product [Unknown]
  - Exposure via skin contact [Unknown]

NARRATIVE: CASE EVENT DATE: 20250104
